FAERS Safety Report 4320522-1 (Version None)
Quarter: 2004Q1

REPORT INFORMATION
  Report Type: 
  Country: None (occurrence: None)
  Receive Date: 20040315
  Receipt Date: 20040210
  Transmission Date: 20041129
  Serious: Yes (Other)
  Sender: FDA-Public Use
  Company Number: 2004195066US

PATIENT
  Age: 60 Year
  Sex: Female

DRUGS (4)
  1. BEXTRA [Suspect]
     Dosage: 20 MG, QD
  2. PANTOPRAZOLE SODIUM [Concomitant]
  3. XANAX [Concomitant]
  4. PREMARIN [Concomitant]

REACTIONS (1)
  - RASH [None]
